FAERS Safety Report 6477594-8 (Version None)
Quarter: 2009Q4

REPORT INFORMATION
  Report Type: 
  Country: None (occurrence: None)
  Receive Date: 20091203
  Receipt Date: 20091203
  Transmission Date: 20100525
  Serious: Yes (Disabling)
  Sender: FDA-Public Use
  Company Number: None

PATIENT
  Age: 46 Year
  Sex: Female
  Weight: 68.0396 kg

DRUGS (2)
  1. FENTANYL-75 [Suspect]
     Indication: PAIN
     Dosage: PATCH Q 72 HOURS TOP
     Route: 061
     Dates: start: 20091128, end: 20091129
  2. FENTANYL-75 [Suspect]
     Indication: PAIN
     Dosage: PATCH Q 72 HOURS TOP
     Route: 061
     Dates: start: 20091129, end: 20091130

REACTIONS (3)
  - DRUG EFFECT DECREASED [None]
  - PRODUCT ADHESION ISSUE [None]
  - PRODUCT QUALITY ISSUE [None]
